FAERS Safety Report 26168732 (Version 2)
Quarter: 2025Q4

REPORT INFORMATION
  Report Type: Spontaneous
  Country: US (occurrence: US)
  Receive Date: 20251217
  Receipt Date: 20251223
  Transmission Date: 20260117
  Serious: Yes (Other)
  Sender: DR REDDYS
  Company Number: None

PATIENT
  Age: 70 Year
  Sex: Male

DRUGS (2)
  1. DOXORUBICIN [Suspect]
     Active Substance: DOXORUBICIN
     Indication: Malignant fibrous histiocytoma
  2. CISPLATIN [Suspect]
     Active Substance: CISPLATIN
     Indication: Malignant fibrous histiocytoma

REACTIONS (2)
  - Cerebrovascular accident [Unknown]
  - Product use in unapproved indication [Unknown]
